FAERS Safety Report 4334089-5 (Version None)
Quarter: 2004Q2

REPORT INFORMATION
  Report Type: 
  Country: None (occurrence: None)
  Receive Date: 20040402
  Receipt Date: 20040317
  Transmission Date: 20050107
  Serious: Yes (Hospitalization)
  Sender: FDA-Public Use
  Company Number: WAES 0403FRA00044

PATIENT
  Age: 49 Year
  Sex: Female

DRUGS (4)
  1. VIOXX [Suspect]
     Indication: ROTATOR CUFF SYNDROME
     Dosage: 50 MG/DAILY PO
     Route: 048
     Dates: start: 20040218, end: 20040226
  2. TAB PLACEBO [Suspect]
     Indication: ROTATOR CUFF SYNDROME
     Dosage: PO
     Route: 048
     Dates: start: 20040218, end: 20040226
  3. ACETAMINOPHEN [Concomitant]
  4. CORTISONE [Concomitant]

REACTIONS (3)
  - DUODENAL ULCER PERFORATION [None]
  - HELICOBACTER INFECTION [None]
  - PERITONITIS [None]
